FAERS Safety Report 7113162-2 (Version None)
Quarter: 2010Q4

REPORT INFORMATION
  Report Type: 
  Country: None (occurrence: None)
  Receive Date: 20101119
  Receipt Date: 20101110
  Transmission Date: 20110411
  Serious: Yes (Hospitalization)
  Sender: FDA-Public Use
  Company Number: IT-SANOFI-AVENTIS-2010SA066436

PATIENT
  Age: 77 Year
  Sex: Male

DRUGS (6)
  1. PLAVIX [Suspect]
     Indication: THROMBOSIS PROPHYLAXIS
     Route: 048
     Dates: start: 20100101
  2. ASPIRIN [Suspect]
     Indication: THROMBOSIS PROPHYLAXIS
     Route: 048
     Dates: start: 20100101
  3. RAMIPRIL [Concomitant]
     Route: 065
  4. BISOPROLOL FUMARATE [Concomitant]
     Route: 065
  5. ATORVASTATIN [Concomitant]
     Route: 065
  6. PANTOPRAZOLE [Concomitant]
     Route: 065

REACTIONS (3)
  - EPISTAXIS [None]
  - HYPERTENSION [None]
  - TREMOR [None]
